FAERS Safety Report 26081323 (Version 1)
Quarter: 2025Q4

REPORT INFORMATION
  Report Type: Spontaneous
  Country: EU (occurrence: EU)
  Receive Date: 20251124
  Receipt Date: 20251124
  Transmission Date: 20260117
  Serious: No
  Sender: ALKEM
  Company Number: EU-ALKEM LABORATORIES LIMITED-DE-ALKEM-2025-02882

PATIENT
  Age: 64 Year
  Sex: Male
  Weight: 92 kg

DRUGS (20)
  1. RASAGILINE MESYLATE [Suspect]
     Active Substance: RASAGILINE MESYLATE
     Indication: Product used for unknown indication
     Dosage: 1 MILLIGRAM, QD (TABLET)
     Route: 065
  2. CARBIDOPA\LEVODOPA [Suspect]
     Active Substance: CARBIDOPA\LEVODOPA
     Indication: Parkinsonism
     Dosage: 2 DOSAGE FORM
     Route: 065
     Dates: start: 202202
  3. CARBIDOPA\LEVODOPA [Suspect]
     Active Substance: CARBIDOPA\LEVODOPA
     Indication: Parkinsonism
     Dosage: 1.5 DOSAGE FORM, EVERY 3 DAY
     Route: 065
     Dates: start: 201610
  4. CARBIDOPA\LEVODOPA [Suspect]
     Active Substance: CARBIDOPA\LEVODOPA
     Dosage: 1 DOSAGE FORM, EVERY 3 DAY
     Route: 065
     Dates: start: 201706
  5. CARBIDOPA\LEVODOPA [Suspect]
     Active Substance: CARBIDOPA\LEVODOPA
     Dosage: 1 DOSAGE FORM, EVERY 3 DAY
     Route: 065
     Dates: start: 202010
  6. CARBIDOPA\LEVODOPA [Suspect]
     Active Substance: CARBIDOPA\LEVODOPA
     Dosage: UNK
     Route: 065
     Dates: start: 202010
  7. CARBIDOPA\LEVODOPA [Suspect]
     Active Substance: CARBIDOPA\LEVODOPA
     Dosage: UNK
     Route: 065
     Dates: start: 202208
  8. CARBIDOPA\LEVODOPA [Suspect]
     Active Substance: CARBIDOPA\LEVODOPA
     Dosage: UNK
     Route: 065
     Dates: start: 202307
  9. BENSERAZIDE HYDROCHLORIDE\LEVODOPA [Suspect]
     Active Substance: BENSERAZIDE HYDROCHLORIDE\LEVODOPA
     Indication: Product used for unknown indication
     Dosage: 1 DOSAGE FORM, QD
     Route: 065
     Dates: start: 202310
  10. ONGENTYS [Suspect]
     Active Substance: OPICAPONE
     Indication: Parkinsonism
     Dosage: 2 DOSAGE FORM, QD
     Route: 065
     Dates: start: 202307
  11. QUETIAPINE [Suspect]
     Active Substance: QUETIAPINE
     Indication: Sleep disorder
     Dosage: 1 DOSAGE FORM, QD (FILMTABLETTEN)
     Route: 065
  12. QUETIAPINE [Suspect]
     Active Substance: QUETIAPINE
     Indication: Parkinsonism
     Dosage: 25 MILLIGRAM, QD
     Route: 065
     Dates: start: 202410, end: 20250206
  13. RASAGILINE [Suspect]
     Active Substance: RASAGILINE
     Indication: Parkinsonism
     Dosage: 1 DOSAGE FORM, QD
     Route: 065
     Dates: start: 202101
  14. ROPINIROLE [Suspect]
     Active Substance: ROPINIROLE
     Indication: Parkinsonism
     Dosage: 2 MILLIGRAM, EVERY 3 DAY
     Route: 065
     Dates: start: 201706
  15. ROPINIROLE [Suspect]
     Active Substance: ROPINIROLE
     Dosage: 2 MILLIGRAM, EVERY 3 DAY
     Route: 065
     Dates: start: 201906
  16. ROPINIROLE [Suspect]
     Active Substance: ROPINIROLE
     Dosage: 2 MILLIGRAM, QD
     Route: 065
     Dates: start: 202010
  17. ROPINIROLE [Suspect]
     Active Substance: ROPINIROLE
     Dosage: 2 MILLIGRAM, EVERY 2 DAY
     Route: 065
     Dates: start: 202101
  18. ROPINIROLE [Suspect]
     Active Substance: ROPINIROLE
     Indication: Parkinsonism
     Dosage: 4 MILLIGRAM, EVERY 3 DAY
     Route: 065
     Dates: start: 201906
  19. ROPINIROLE [Suspect]
     Active Substance: ROPINIROLE
     Dosage: 4 MILLIGRAM, QD
     Route: 065
     Dates: start: 202010
  20. ROPINIROLE [Suspect]
     Active Substance: ROPINIROLE
     Dosage: 4 MILLIGRAM, EVERY 2 DAY
     Route: 065
     Dates: start: 202307

REACTIONS (9)
  - Blood thyroid stimulating hormone increased [Unknown]
  - Fatigue [Recovered/Resolved]
  - Food interaction [Unknown]
  - Drug interaction [Unknown]
  - Weight decreased [Recovered/Resolved]
  - Somnolence [Recovered/Resolved]
  - Night sweats [Recovered/Resolved]
  - Dizziness [Unknown]
  - Dry mouth [Recovered/Resolved]

NARRATIVE: CASE EVENT DATE: 20241101
